FAERS Safety Report 6407466-6 (Version None)
Quarter: 2009Q4

REPORT INFORMATION
  Report Type: 
  Country: None (occurrence: None)
  Receive Date: 20091015
  Receipt Date: 20091001
  Transmission Date: 20100525
  Serious: Yes (Death, Life-Threatening)
  Sender: FDA-Public Use
  Company Number: 8053040

PATIENT
  Age: 74 Year
  Sex: Male

DRUGS (9)
  1. KEPPRA [Suspect]
     Indication: EPILEPSY
     Dosage: 500 MG 2/D
     Dates: start: 20090910, end: 20090930
  2. ASPIRIN [Concomitant]
  3. BELOC ZOK [Concomitant]
  4. AMLODIPINE [Concomitant]
  5. DEXAMETHASONE [Concomitant]
  6. NEO-MERCAZOLE TAB [Concomitant]
  7. EFEXOR /0123801/ [Concomitant]
  8. NEXIUM [Concomitant]
  9. VANCOMYCIN PCH [Concomitant]

REACTIONS (3)
  - CEREBRAL HAEMORRHAGE [None]
  - SEPSIS [None]
  - THROMBOCYTOPENIA [None]
